FAERS Safety Report 9367003 (Version 2)
Quarter: 2013Q3

REPORT INFORMATION
  Report Type: Report from Study
  Country: US (occurrence: US)
  Receive Date: 20130625
  Receipt Date: 20130716
  Transmission Date: 20140515
  Serious: Yes (Death)
  Sender: FDA-Public Use
  Company Number: US-PURDUE-USA-2013-0103757

PATIENT
  Age: 52 Year
  Sex: Male
  Weight: 71.66 kg

DRUGS (1)
  1. OXYCONTIN (NDA 22-272) [Suspect]
     Indication: PAIN
     Dosage: 45 MG, BID
     Route: 048

REACTIONS (1)
  - Malignant neoplasm progression [Fatal]
